FAERS Safety Report 8702491 (Version 3)
Quarter: 2012Q4

REPORT INFORMATION
  Report Type: 
  Country: GB (occurrence: GB)
  Receive Date: 20120803
  Receipt Date: 20121026
  Transmission Date: 20130627
  Serious: Yes (Hospitalization)
  Sender: FDA-Public Use
  Company Number: GB-JNJFOC-20120801184

PATIENT
  Age: 72 Year
  Sex: Female
  Weight: 53 kg

DRUGS (7)
  1. XARELTO [Suspect]
     Indication: KNEE OPERATION
     Route: 048
     Dates: start: 20120616, end: 20120701
  2. XARELTO [Suspect]
     Indication: THROMBOSIS PROPHYLAXIS
     Route: 048
     Dates: start: 20120616, end: 20120701
  3. APIXABAN [Suspect]
     Indication: THROMBOSIS PROPHYLAXIS
     Dates: start: 20120616, end: 20120701
  4. CALCIUM CARBONATE [Concomitant]
  5. LEVOTHYROXINE [Concomitant]
  6. COLECALCIFEROL [Concomitant]
  7. AMILORIDE HYDROCHLORIDE/FUROSEMIDE [Concomitant]

REACTIONS (4)
  - Arthralgia [Not Recovered/Not Resolved]
  - Joint swelling [Not Recovered/Not Resolved]
  - Haematoma [Not Recovered/Not Resolved]
  - Wound haemorrhage [Not Recovered/Not Resolved]
